FAERS Safety Report 16070764 (Version 1)
Quarter: 2019Q1

REPORT INFORMATION
  Report Type: Spontaneous
  Country: US (occurrence: US)
  Receive Date: 20190314
  Receipt Date: 20190314
  Transmission Date: 20190418
  Serious: No
  Sender: FDA-Public Use
  Company Number: US-BAYER-2019-051139

PATIENT
  Age: 84 Year
  Sex: Male
  Weight: 78 kg

DRUGS (3)
  1. MIRALAX [Suspect]
     Active Substance: POLYETHYLENE GLYCOL 3350
     Indication: GASTROINTESTINAL DISORDER
     Dosage: 2 DF
     Route: 048
  2. PRAVASTATIN. [Concomitant]
     Active Substance: PRAVASTATIN
  3. PRILOSEC [Suspect]
     Active Substance: OMEPRAZOLE MAGNESIUM
     Dosage: UNK

REACTIONS (5)
  - Incorrect dose administered [None]
  - Nausea [Not Recovered/Not Resolved]
  - Abdominal discomfort [Not Recovered/Not Resolved]
  - Flatulence [Not Recovered/Not Resolved]
  - Abdominal pain upper [Not Recovered/Not Resolved]

NARRATIVE: CASE EVENT DATE: 201902
